FAERS Safety Report 10885937 (Version 1)
Quarter: 2015Q1

REPORT INFORMATION
  Report Type: Spontaneous
  Country: US (occurrence: None)
  Receive Date: 20150227
  Receipt Date: 20150227
  Transmission Date: 20150721
  Serious: Yes (Other)
  Sender: FDA-Public Use
  Company Number: None

PATIENT
  Age: 57 Year
  Sex: Female
  Weight: 80 kg

DRUGS (1)
  1. LOSARTAN [Suspect]
     Active Substance: LOSARTAN
     Indication: HYPERTENSION
     Dosage: 1 TAB
     Route: 048
     Dates: start: 20130611

REACTIONS (3)
  - Dry skin [None]
  - Dry mouth [None]
  - Muscle spasms [None]

NARRATIVE: CASE EVENT DATE: 20130611
